FAERS Safety Report 10790346 (Version 1)
Quarter: 2015Q1

REPORT INFORMATION
  Report Type: Spontaneous
  Country: US (occurrence: US)
  Receive Date: 20150212
  Receipt Date: 20150212
  Transmission Date: 20150721
  Serious: Yes (Disabling, Other)
  Sender: FDA-Public Use
  Company Number: US-BAXTER-2015BAX006864

PATIENT
  Age: 16 Year
  Sex: Male
  Weight: 44 kg

DRUGS (9)
  1. PROPOFOL. [Suspect]
     Active Substance: PROPOFOL
     Indication: MAINTENANCE OF ANAESTHESIA
     Route: 042
  2. PROPOFOL. [Suspect]
     Active Substance: PROPOFOL
     Route: 042
  3. SEVOFLURANE, USP [Suspect]
     Active Substance: SEVOFLURANE
     Indication: MAINTENANCE OF ANAESTHESIA
     Route: 055
  4. FENTANYL. [Suspect]
     Active Substance: FENTANYL
     Indication: INDUCTION OF ANAESTHESIA
     Route: 065
  5. ROCURONIUM [Suspect]
     Active Substance: ROCURONIUM BROMIDE
     Indication: INDUCTION OF ANAESTHESIA
     Route: 065
  6. ROPIVACAINE [Suspect]
     Active Substance: ROPIVACAINE
     Indication: MAINTENANCE OF ANAESTHESIA
     Dosage: 0.2 %, BOLUS
     Route: 008
  7. EPINEPHRINE. [Suspect]
     Active Substance: EPINEPHRINE
     Indication: EPIDURAL TEST DOSE
     Dosage: LIDOCAINE 1.5 % WITH EPINEPHRINE AT 1:200000 RATIO
     Route: 008
  8. LIDOCAINE HYDROCHLORIDE AND 5% DEXTROSE INJECTION, USP [Suspect]
     Active Substance: LIDOCAINE HYDROCHLORIDE
     Indication: EPIDURAL TEST DOSE
     Dosage: 1.5 % WITH EPINEPHRINE AT 1:200000 RATIO
     Route: 008
  9. ROPIVACAINE [Suspect]
     Active Substance: ROPIVACAINE
     Dosage: 0.2 %, INFUSION
     Route: 008

REACTIONS (4)
  - Blood pressure increased [Unknown]
  - Paraplegia [Not Recovered/Not Resolved]
  - Spinal cord oedema [Unknown]
  - Spinal cord infarction [Unknown]
